FAERS Safety Report 8495414-7 (Version None)
Quarter: 2012Q3

REPORT INFORMATION
  Report Type: 
  Country: None (occurrence: None)
  Receive Date: 20120709
  Receipt Date: 20120702
  Transmission Date: 20120928
  Serious: Yes (Hospitalization, Other)
  Sender: FDA-Public Use
  Company Number: US-BAYER-2012-050103

PATIENT
  Age: 34 Year
  Sex: Female
  Weight: 112.2 kg

DRUGS (12)
  1. AZITHROMYCIN [Concomitant]
  2. LEVOFLOXACIN [Concomitant]
  3. TORADOL [Concomitant]
     Indication: PAIN
  4. DILAUDID [Concomitant]
  5. CIPROFLOXACIN [Concomitant]
     Dosage: DAILY
     Dates: start: 20111114
  6. METFORMIN HCL [Concomitant]
     Indication: POLYCYSTIC OVARIES
     Dosage: UNK
     Dates: start: 20110305
  7. TRAMADOL HCL [Concomitant]
     Indication: INFLAMMATION
  8. PROAIR HFA [Concomitant]
  9. COUGH AND COLD PREPARATIONS [Concomitant]
  10. BEYAZ [Suspect]
     Indication: CONTRACEPTION
     Dosage: UNK
     Dates: start: 20110305, end: 20111101
  11. TRAMADOL HCL [Concomitant]
     Indication: PAIN
     Dosage: DAILY
     Dates: start: 20111114
  12. PREDNISONE [Concomitant]

REACTIONS (9)
  - CHOLECYSTITIS ACUTE [None]
  - GENERAL PHYSICAL HEALTH DETERIORATION [None]
  - PULMONARY EMBOLISM [None]
  - EMOTIONAL DISTRESS [None]
  - INJURY [None]
  - PAIN [None]
  - ANXIETY [None]
  - GALLBLADDER DISORDER [None]
  - ANHEDONIA [None]
